FAERS Safety Report 4335599-7 (Version None)
Quarter: 2004Q2

REPORT INFORMATION
  Report Type: 
  Country: None (occurrence: None)
  Receive Date: 20040406
  Receipt Date: 20040324
  Transmission Date: 20050107
  Serious: Yes (Other)
  Sender: FDA-Public Use
  Company Number: US070296

PATIENT
  Sex: Male

DRUGS (2)
  1. ENBREL [Suspect]
     Indication: RHEUMATOID ARTHRITIS
  2. THALIDOMIDE [Suspect]
     Dosage: 150 MG, 1 IN 1 DAYS, PO
     Route: 048
     Dates: start: 20030506

REACTIONS (1)
  - PAPILLOEDEMA [None]
